FAERS Safety Report 5511376-6 (Version None)
Quarter: 2007Q4

REPORT INFORMATION
  Report Type: 
  Country: None (occurrence: None)
  Receive Date: 20071109
  Receipt Date: 20070927
  Transmission Date: 20080405
  Serious: Yes (Other)
  Sender: FDA-Public Use
  Company Number: A0684707A

PATIENT
  Sex: Male

DRUGS (2)
  1. ALTABAX [Suspect]
     Indication: WOUND
     Route: 061
     Dates: start: 20070901, end: 20070901
  2. CIPROFLOXACIN [Concomitant]

REACTIONS (2)
  - APPLICATION SITE IRRITATION [None]
  - DRUG INEFFECTIVE [None]
